FAERS Safety Report 8383933-3 (Version None)
Quarter: 2012Q2

REPORT INFORMATION
  Report Type: 
  Country: None (occurrence: None)
  Receive Date: 20120524
  Receipt Date: 20120516
  Transmission Date: 20120825
  Serious: Yes (Death, Hospitalization)
  Sender: FDA-Public Use
  Company Number: DE-ROCHE-1062891

PATIENT
  Age: 48 Year
  Sex: Male
  Weight: 80 kg

DRUGS (2)
  1. VEMURAFENIB [Suspect]
     Indication: MALIGNANT MELANOMA
     Dosage: LAST DOSE PRIOR TO SAE: 19/APR/2012
     Route: 048
     Dates: start: 20120130, end: 20120424
  2. TRAMADOL HCL [Concomitant]
     Dates: start: 20120101

REACTIONS (2)
  - NEOPLASM PROGRESSION [None]
  - ANAEMIA [None]
